FAERS Safety Report 23886222 (Version 1)
Quarter: 2024Q2

REPORT INFORMATION
  Report Type: Spontaneous
  Country: IT (occurrence: IT)
  Receive Date: 20240522
  Receipt Date: 20240522
  Transmission Date: 20240716
  Serious: Yes (Hospitalization, Other)
  Sender: FDA-Public Use
  Company Number: IT-ASTELLAS-2024US014439

PATIENT
  Age: 72 Year
  Sex: Female

DRUGS (8)
  1. XOSPATA [Suspect]
     Active Substance: GILTERITINIB
     Indication: Product used for unknown indication
     Route: 065
     Dates: start: 20211002, end: 20211212
  2. XOSPATA [Suspect]
     Active Substance: GILTERITINIB
     Dosage: 80 MG, ONCE DAILY (REDUCTION)
     Route: 065
     Dates: start: 20211213, end: 20220328
  3. XOSPATA [Suspect]
     Active Substance: GILTERITINIB
     Dosage: 120 MG, ONCE DAILY (INCREASED)
     Route: 065
     Dates: start: 20220329, end: 20230124
  4. XOSPATA [Suspect]
     Active Substance: GILTERITINIB
     Dosage: 200 MG, ONCE DAILY (DISCONTINUED)
     Route: 065
     Dates: start: 20230125, end: 20230420
  5. XOSPATA [Suspect]
     Active Substance: GILTERITINIB
     Dosage: 80 MG, ONCE DAILY (RESTARTS)
     Route: 065
     Dates: start: 20230504, end: 20230522
  6. XOSPATA [Suspect]
     Active Substance: GILTERITINIB
     Dosage: 120 MG, ONCE DAILY (INCREASE)
     Route: 065
     Dates: start: 20230523, end: 20230620
  7. XOSPATA [Suspect]
     Active Substance: GILTERITINIB
     Dosage: 200 MG, ONCE DAILY (DISCONTINUED)
     Route: 065
     Dates: start: 20230621, end: 20240311
  8. XOSPATA [Suspect]
     Active Substance: GILTERITINIB
     Dosage: 200 MG, ONCE DAILY (REINTRODUCTION)
     Route: 065
     Dates: start: 20240417

REACTIONS (10)
  - Hyperthermia [Unknown]
  - Stupor [Unknown]
  - Hepatotoxicity [Unknown]
  - Leptotrichia infection [Recovered/Resolved]
  - Gastroenteritis Escherichia coli [Recovered/Resolved]
  - Pulmonary embolism [Unknown]
  - Intra-abdominal haematoma [Not Recovered/Not Resolved]
  - Deep vein thrombosis [Not Recovered/Not Resolved]
  - Haematotoxicity [Unknown]
  - Diverticulum intestinal [Unknown]

NARRATIVE: CASE EVENT DATE: 20211021
